FAERS Safety Report 7339732-4 (Version None)
Quarter: 2011Q1

REPORT INFORMATION
  Report Type: 
  Country: None (occurrence: None)
  Receive Date: 20110303
  Receipt Date: 20110303
  Transmission Date: 20110831
  Serious: Yes (Hospitalization)
  Sender: FDA-Public Use
  Company Number: None

PATIENT

DRUGS (3)
  1. MERCAPTOPURINE [Suspect]
     Dosage: 5600 MG
     Dates: end: 20110220
  2. TRETINOIN [Suspect]
     Dosage: 2800 MG
     Dates: end: 20110220
  3. METHOTREXATE [Suspect]
     Dosage: 171.6 MG
     Dates: end: 20110207

REACTIONS (12)
  - VOMITING [None]
  - ALANINE AMINOTRANSFERASE INCREASED [None]
  - LIVER DISORDER [None]
  - ASPARTATE AMINOTRANSFERASE INCREASED [None]
  - NAUSEA [None]
  - BLISTER [None]
  - DECREASED APPETITE [None]
  - JAUNDICE [None]
  - SKIN DISORDER [None]
  - SKIN EXFOLIATION [None]
  - LETHARGY [None]
  - BLOOD LACTATE DEHYDROGENASE [None]
